FAERS Safety Report 7532401-7 (Version None)
Quarter: 2011Q2

REPORT INFORMATION
  Report Type: 
  Country: None (occurrence: None)
  Receive Date: 20110608
  Receipt Date: 20110601
  Transmission Date: 20111010
  Serious: Yes (Hospitalization)
  Sender: FDA-Public Use
  Company Number: JP-ABBOTT-11P-087-0729501-00

PATIENT
  Age: 13 Year
  Sex: Female

DRUGS (1)
  1. CLARITHROMYCIN [Suspect]
     Indication: PYREXIA

REACTIONS (1)
  - TUBULOINTERSTITIAL NEPHRITIS AND UVEITIS SYNDROME [None]
